FAERS Safety Report 9986156 (Version 1)
Quarter: 2014Q1

REPORT INFORMATION
  Report Type: Report from Study
  Country: US (occurrence: US)
  Receive Date: 20140307
  Receipt Date: 20140307
  Transmission Date: 20141002
  Serious: No
  Sender: FDA-Public Use
  Company Number: US-ABBVIE-13P-163-1090574-00

PATIENT
  Age: 58 Year
  Sex: Female
  Weight: 59.02 kg

DRUGS (10)
  1. HUMIRA [Suspect]
     Indication: PSORIATIC ARTHROPATHY
     Dates: start: 20120601
  2. NIASPAN (COATED) [Suspect]
     Indication: BLOOD CHOLESTEROL INCREASED
     Dates: start: 201204
  3. NIASPAN (COATED) [Suspect]
     Dates: end: 201204
  4. LISINOPRIL [Concomitant]
     Indication: HYPERTENSION
     Dates: end: 201204
  5. LISINOPRIL [Concomitant]
     Dosage: LARGER DOSE
     Dates: start: 201204
  6. FISH OIL [Concomitant]
     Indication: DRY EYE
     Dates: start: 2011
  7. FISH OIL [Concomitant]
     Indication: DIPLOPIA
  8. MULTIVITAMIN [Concomitant]
     Indication: VITAMIN SUPPLEMENTATION
  9. VITAMIN E [Concomitant]
     Indication: VITAMIN SUPPLEMENTATION
  10. VITAMIN D [Concomitant]
     Indication: VITAMIN D DECREASED

REACTIONS (7)
  - Osteoarthritis [Not Recovered/Not Resolved]
  - Hepatic enzyme increased [Unknown]
  - Intraocular pressure increased [Unknown]
  - Diplopia [Not Recovered/Not Resolved]
  - Dry skin [Not Recovered/Not Resolved]
  - Pain [Not Recovered/Not Resolved]
  - Drug ineffective [Not Recovered/Not Resolved]
